FAERS Safety Report 10027973 (Version 2)
Quarter: 2014Q1

REPORT INFORMATION
  Report Type: Spontaneous
  Country: JP (occurrence: None)
  Receive Date: 20140226
  Receipt Date: 20140227
  Transmission Date: 20141002
  Serious: Yes (Death, Other)
  Sender: FDA-Public Use
  Company Number: ADR-2011-10039

PATIENT
  Age: 40 Year
  Sex: Male

DRUGS (7)
  1. GABALON [Suspect]
     Indication: MUSCLE SPASTICITY
     Dosage: UNK MCG
     Route: 037
     Dates: start: 200706
  2. GABAPEN [Concomitant]
  3. CERCINE [Concomitant]
  4. JUVELA N SOFT CAPSULES [Concomitant]
  5. METHYL COBAL TABLETS [Concomitant]
  6. PURSENNID TABLETS [Concomitant]
  7. NAUZELIN TABLETS [Concomitant]

REACTIONS (2)
  - Fall [None]
  - Muscle spasms [None]
